FAERS Safety Report 13545521 (Version 2)
Quarter: 2017Q2

REPORT INFORMATION
  Report Type: Spontaneous
  Country: US (occurrence: US)
  Receive Date: 20170515
  Receipt Date: 20170609
  Transmission Date: 20170830
  Serious: No
  Sender: FDA-Public Use
  Company Number: US-PFIZER INC-2017206261

PATIENT
  Sex: Female

DRUGS (1)
  1. XELJANZ XR [Suspect]
     Active Substance: TOFACITINIB CITRATE
     Dosage: UNK

REACTIONS (13)
  - Hypoaesthesia [Unknown]
  - Lacrimation increased [Unknown]
  - Arthralgia [Unknown]
  - Burning sensation [Unknown]
  - Dyspnoea [Unknown]
  - Pruritus [Unknown]
  - Vision blurred [Unknown]
  - Haematocrit increased [Unknown]
  - Pain in extremity [Unknown]
  - Musculoskeletal pain [Unknown]
  - Eczema [Recovered/Resolved]
  - White blood cell count increased [Unknown]
  - Joint swelling [Unknown]
